FAERS Safety Report 8230617-8 (Version None)
Quarter: 2012Q1

REPORT INFORMATION
  Report Type: 
  Country: None (occurrence: None)
  Receive Date: 20120322
  Receipt Date: 20120322
  Transmission Date: 20120608
  Serious: Yes (Hospitalization)
  Sender: FDA-Public Use
  Company Number: None

PATIENT
  Sex: Female
  Weight: 100 kg

DRUGS (2)
  1. CARBOPLATIN [Suspect]
     Dosage: 631 MG
  2. TAXOL [Suspect]
     Dosage: 350 MG

REACTIONS (2)
  - NEUTROPENIA [None]
  - TOXICITY TO VARIOUS AGENTS [None]
